FAERS Safety Report 19046715 (Version 3)
Quarter: 2021Q2

REPORT INFORMATION
  Report Type: Spontaneous
  Country: US (occurrence: US)
  Receive Date: 20210323
  Receipt Date: 20210511
  Transmission Date: 20210717
  Serious: No
  Sender: FDA-Public Use
  Company Number: US-SA-2021SA096358

PATIENT
  Age: 12 Year
  Sex: Male

DRUGS (2)
  1. HEPARIN SANOFI [Concomitant]
     Dosage: UNK
  2. DUPIXENT [Suspect]
     Active Substance: DUPILUMAB
     Indication: ASTHMA
     Dosage: 300 MG, QOW
     Route: 058
     Dates: start: 20181210

REACTIONS (1)
  - Inflammation [Unknown]
